FAERS Safety Report 5236141-9 (Version None)
Quarter: 2007Q1

REPORT INFORMATION
  Report Type: 
  Country: None (occurrence: None)
  Receive Date: 20070212
  Receipt Date: 20070206
  Transmission Date: 20070707
  Serious: Yes (Hospitalization)
  Sender: FDA-Public Use
  Company Number: US-JNJFOC-20070201786

PATIENT
  Sex: Male

DRUGS (3)
  1. MOTRIN IB [Suspect]
  2. MOTRIN IB [Suspect]
     Indication: DRUG USE FOR UNKNOWN INDICATION
  3. BARBITURATES [Suspect]
     Indication: DRUG USE FOR UNKNOWN INDICATION
     Dosage: ^LARGE DOSE^

REACTIONS (1)
  - STARING [None]
